FAERS Safety Report 8830587 (Version 4)
Quarter: 2014Q3

REPORT INFORMATION
  Report Type: Report from Study
  Country: DE (occurrence: DE)
  Receive Date: 20121008
  Receipt Date: 20140915
  Transmission Date: 20150326
  Serious: Yes (Hospitalization, Disabling, Other)
  Sender: FDA-Public Use
  Company Number: DE-UCBSA-039256

PATIENT
  Sex: Male
  Weight: 70 kg

DRUGS (14)
  1. METHOTREXATE [Concomitant]
     Active Substance: METHOTREXATE
     Dosage: 25.0
  2. PREDNISOLON [Concomitant]
     Active Substance: PREDNISOLONE
     Indication: RHEUMATOID ARTHRITIS
     Dosage: 6 MG, ONCE DAILY (QD)
     Route: 048
     Dates: start: 20050315
  3. FOSAMAX [Concomitant]
     Active Substance: ALENDRONATE SODIUM
     Indication: OSTEOPOROSIS
     Dosage: 70 MG, WEEKLY (QW)
     Route: 048
     Dates: start: 200412
  4. CERTOLIZUMAB PEGOL RA [Suspect]
     Active Substance: CERTOLIZUMAB PEGOL
     Indication: RHEUMATOID ARTHRITIS
     Dosage: DOSE: 200 MG
     Route: 058
     Dates: start: 20100427, end: 20101109
  5. METHOTREXATE [Concomitant]
     Active Substance: METHOTREXATE
     Dosage: 20.0
  6. ASPIRIN. [Concomitant]
     Active Substance: ASPIRIN
     Indication: CORONARY ARTERY DISEASE
     Dosage: 100 (1X1)
     Dates: start: 1993
  7. INEGY [Concomitant]
     Active Substance: EZETIMIBE\SIMVASTATIN
     Indication: HYPERCHOLESTEROLAEMIA
     Dosage: EZETIMIB: 10 MG; SIMVASTATIN: 20 MG
     Route: 048
     Dates: start: 20051108
  8. CARVEDILOL. [Concomitant]
     Active Substance: CARVEDILOL
     Indication: HYPERTENSION
     Dosage: 3.125 MG, 2X/DAY (BID)
     Route: 048
     Dates: start: 2005
  9. METHOTREXATE [Concomitant]
     Active Substance: METHOTREXATE
     Dosage: 15.0
  10. ASPIRIN. [Concomitant]
     Active Substance: ASPIRIN
     Dosage: 100 MG, ONCE DAILY (QD)
     Route: 048
     Dates: start: 2004
  11. RAMIPRIL. [Concomitant]
     Active Substance: RAMIPRIL
     Indication: HYPERTENSION
     Dosage: 5 MG, ONCE DAILY (QD)
     Route: 048
     Dates: start: 2005
  12. METHOTREXATE [Concomitant]
     Active Substance: METHOTREXATE
     Dosage: 10.0
  13. CALCILAC KT [Concomitant]
     Indication: OSTEOPOROSIS
     Dosage: CALCIUM: 1000 MG; CHOLECALCIFEROL: 800 IE
     Route: 048
     Dates: start: 200412
  14. PANTOZOL [Concomitant]
     Active Substance: PANTOPRAZOLE SODIUM
     Indication: PROPHYLAXIS
     Dosage: 40 MG, ONCE DAILY (QD)
     Route: 048
     Dates: start: 20051108

REACTIONS (3)
  - Cerebrovascular accident [Recovered/Resolved]
  - Paralysis flaccid [Recovered/Resolved]
  - Facial paresis [Recovered/Resolved]

NARRATIVE: CASE EVENT DATE: 20100907
